FAERS Safety Report 9785200 (Version 1)
Quarter: 2013Q4

REPORT INFORMATION
  Report Type: Spontaneous
  Country: US (occurrence: US)
  Receive Date: 20131227
  Receipt Date: 20131227
  Transmission Date: 20140711
  Serious: Yes (Hospitalization)
  Sender: FDA-Public Use
  Company Number: US-SA-2013SA135268

PATIENT
  Age: 78 Year
  Sex: Male
  Weight: 78 kg

DRUGS (4)
  1. DDAVP [Suspect]
     Indication: NOCTURIA
     Route: 048
     Dates: start: 20131121, end: 20131217
  2. LOSARTAN [Concomitant]
  3. LOVAZA [Concomitant]
  4. NAMENDA [Concomitant]

REACTIONS (4)
  - Agitation [Not Recovered/Not Resolved]
  - Mood altered [Recovered/Resolved]
  - Confusional state [Recovered/Resolved]
  - Irritability [Not Recovered/Not Resolved]
